FAERS Safety Report 13558357 (Version 2)
Quarter: 2017Q3

REPORT INFORMATION
  Report Type: Spontaneous
  Country: JP (occurrence: JP)
  Receive Date: 20170517
  Receipt Date: 20170920
  Transmission Date: 20171127
  Serious: Yes (Death, Other)
  Sender: FDA-Public Use
  Company Number: PHJP2017JP016084

PATIENT
  Age: 83 Year
  Sex: Female

DRUGS (3)
  1. LOXONIN [Suspect]
     Active Substance: LOXOPROFEN SODIUM
     Indication: PRODUCT USED FOR UNKNOWN INDICATION
     Dosage: UNK
     Route: 048
  2. PIPERACILLIN SODIUM NICHIIKO [Suspect]
     Active Substance: PIPERACILLIN SODIUM
     Indication: PRODUCT USED FOR UNKNOWN INDICATION
     Dosage: UNK
     Route: 065
  3. TEGRETOL [Suspect]
     Active Substance: CARBAMAZEPINE
     Indication: PRODUCT USED FOR UNKNOWN INDICATION
     Dosage: UNK
     Route: 048
     Dates: start: 201306, end: 201306

REACTIONS (2)
  - Toxic epidermal necrolysis [Unknown]
  - Multiple organ dysfunction syndrome [Fatal]
